FAERS Safety Report 5130825-9 (Version None)
Quarter: 2006Q4

REPORT INFORMATION
  Report Type: 
  Country: None (occurrence: None)
  Receive Date: 20061013
  Receipt Date: 20061002
  Transmission Date: 20070319
  Serious: Yes (Other)
  Sender: FDA-Public Use
  Company Number: 2006095960

PATIENT
  Age: 72 Year
  Sex: Female
  Weight: 64.4108 kg

DRUGS (4)
  1. DETROL LA [Suspect]
     Dosage: 4 MG (1 IN 1 D)
     Dates: start: 20060801, end: 20060804
  2. SYNTHROID [Concomitant]
  3. MILK OF MAGNESIA (MAGNESIA HYDROXIDE) [Concomitant]
  4. ALL OTHER THERAPEUTIC PRODUCTS (ALL OTHER THERAPEUTIC PRODUCTS) [Concomitant]

REACTIONS (1)
  - HYPERSENSITIVITY [None]
